FAERS Safety Report 17031441 (Version 1)
Quarter: 2019Q4

REPORT INFORMATION
  Report Type: Spontaneous
  Country: US (occurrence: US)
  Receive Date: 20191113
  Receipt Date: 20191113
  Transmission Date: 20200122
  Serious: Yes (Hospitalization)
  Sender: FDA-Public Use
  Company Number: None

PATIENT
  Age: 13 Year
  Sex: Female

DRUGS (4)
  1. KITABIS PAK [Concomitant]
     Active Substance: TOBRAMYCIN
     Dates: start: 20180101, end: 20191113
  2. PERTZYE [Concomitant]
     Active Substance: PANCRELIPASE AMYLASE\PANCRELIPASE LIPASE\PANCRELIPASE PROTEASE
     Dates: start: 20180101, end: 20191113
  3. SYMDEKO [Suspect]
     Active Substance: IVACAFTOR\TEZACAFTOR
     Indication: CYSTIC FIBROSIS
     Route: 048
  4. PULMOZYME [Concomitant]
     Active Substance: DORNASE ALFA
     Dates: start: 20180101, end: 20191113

REACTIONS (4)
  - Pyrexia [None]
  - Cystic fibrosis [None]
  - Condition aggravated [None]
  - Pulmonary function test decreased [None]

NARRATIVE: CASE EVENT DATE: 20191113
